FAERS Safety Report 12168485 (Version 7)
Quarter: 2017Q2

REPORT INFORMATION
  Report Type: Spontaneous
  Country: US (occurrence: US)
  Receive Date: 20160310
  Receipt Date: 20170628
  Transmission Date: 20170830
  Serious: Yes (Death, Hospitalization)
  Sender: FDA-Public Use
  Company Number: US-ACTELION-A-US2016-132462

PATIENT
  Age: 60 Year
  Sex: Female

DRUGS (11)
  1. PREDNISONE. [Concomitant]
     Active Substance: PREDNISONE
  2. LEVOTHYROXINE. [Concomitant]
     Active Substance: LEVOTHYROXINE
  3. CYMBALTA [Concomitant]
     Active Substance: DULOXETINE HYDROCHLORIDE
  4. FOLIC ACID. [Concomitant]
     Active Substance: FOLIC ACID
  5. ARAVA [Concomitant]
     Active Substance: LEFLUNOMIDE
  6. LAMICTAL [Concomitant]
     Active Substance: LAMOTRIGINE
  7. POTASSIUM [Concomitant]
     Active Substance: POTASSIUM
  8. ADDERALL [Concomitant]
     Active Substance: AMPHETAMINE ASPARTATE\AMPHETAMINE SULFATE\DEXTROAMPHETAMINE SACCHARATE\DEXTROAMPHETAMINE SULFATE
  9. OPSUMIT [Suspect]
     Active Substance: MACITENTAN
     Indication: PULMONARY ARTERIAL HYPERTENSION
     Dosage: 10 MG, QD
     Route: 048
     Dates: start: 20160105, end: 20170311
  10. SILDENAFIL. [Concomitant]
     Active Substance: SILDENAFIL
  11. LASIX [Concomitant]
     Active Substance: FUROSEMIDE

REACTIONS (11)
  - Hypervolaemia [Not Recovered/Not Resolved]
  - Pulmonary hypertension [Not Recovered/Not Resolved]
  - Nausea [Not Recovered/Not Resolved]
  - Death [Fatal]
  - Interstitial lung disease [Not Recovered/Not Resolved]
  - Cardiac failure congestive [Recovered/Resolved]
  - Fatigue [Not Recovered/Not Resolved]
  - Brain natriuretic peptide abnormal [Not Recovered/Not Resolved]
  - Leukocytosis [Not Recovered/Not Resolved]
  - Anaemia [Not Recovered/Not Resolved]
  - Acute respiratory failure [Not Recovered/Not Resolved]

NARRATIVE: CASE EVENT DATE: 20160222
